FAERS Safety Report 4834154-X (Version None)
Quarter: 2005Q4

REPORT INFORMATION
  Report Type: 
  Country: None (occurrence: None)
  Receive Date: 20051122
  Receipt Date: 20051115
  Transmission Date: 20060501
  Serious: Yes (Death, Hospitalization)
  Sender: FDA-Public Use
  Company Number: FR-AVENTIS-200513745FR

PATIENT
  Age: 41 Year
  Sex: Female
  Weight: 56 kg

DRUGS (3)
  1. TAXOTERE [Suspect]
     Indication: BREAST CANCER
     Route: 042
     Dates: start: 20051103, end: 20051103
  2. SPASFON [Concomitant]
  3. SOLUPRED 20 MG [Concomitant]
     Indication: PREMEDICATION
     Dosage: DOSE UNIT: UNITS
     Route: 048
     Dates: start: 20051102, end: 20051104

REACTIONS (13)
  - BLOOD ALBUMIN DECREASED [None]
  - BLOOD PH DECREASED [None]
  - CATHETER RELATED COMPLICATION [None]
  - FEBRILE NEUTROPENIA [None]
  - FOLLICULITIS [None]
  - HAEMATURIA [None]
  - HAEMORRHOIDS [None]
  - NECROTISING COLITIS [None]
  - ORAL MUCOSAL DISCOLOURATION [None]
  - PLATELET COUNT DECREASED [None]
  - PROTEIN TOTAL DECREASED [None]
  - SEPTIC SHOCK [None]
  - WHITE BLOOD CELL COUNT DECREASED [None]
